FAERS Safety Report 8302056-2 (Version None)
Quarter: 2012Q2

REPORT INFORMATION
  Report Type: 
  Country: None (occurrence: None)
  Receive Date: 20120420
  Receipt Date: 20120411
  Transmission Date: 20120825
  Serious: Yes (Hospitalization, Other)
  Sender: FDA-Public Use
  Company Number: JP-MERCK-1203USA02218

PATIENT
  Age: 80 Year
  Sex: Male

DRUGS (4)
  1. LIVALO [Concomitant]
     Indication: HYPERCHOLESTEROLAEMIA
     Route: 048
  2. JANUVIA [Suspect]
     Indication: DIABETES MELLITUS
     Route: 048
     Dates: start: 20120209, end: 20120309
  3. HUMALOG [Concomitant]
     Indication: DIABETES MELLITUS
     Dosage: 12 UNITS AND 6 UNITS TWICE
     Route: 058
  4. TICLOPIDINE HCL [Concomitant]
     Route: 048

REACTIONS (4)
  - NEOPLASM MALIGNANT [None]
  - ASPARTATE AMINOTRANSFERASE INCREASED [None]
  - ALANINE AMINOTRANSFERASE INCREASED [None]
  - APHAGIA [None]
